FAERS Safety Report 8218707-7 (Version None)
Quarter: 2012Q1

REPORT INFORMATION
  Report Type: 
  Country: None (occurrence: None)
  Receive Date: 20120319
  Receipt Date: 20120312
  Transmission Date: 20120608
  Serious: Yes (Other)
  Sender: FDA-Public Use
  Company Number: PHHY2012BR012766

PATIENT
  Sex: Female

DRUGS (8)
  1. FUROSEMIDE [Concomitant]
     Indication: DIURETIC THERAPY
     Dosage: 1 DF, QD
  2. PROPRANOLOL [Concomitant]
     Indication: HYPERTENSION
     Dosage: 1 DF, QD
  3. OLEPTAL [Concomitant]
     Indication: CONFUSIONAL STATE
     Dosage: 1 DF, QD
  4. VASOGARD [Concomitant]
     Indication: CARDIOVASCULAR DISORDER
     Dosage: 1 DF, QD
  5. CYCLOBENZAPRINE HCL [Concomitant]
     Indication: PAIN
     Dosage: 1-2 TABLETS, DAILY
  6. EXFORGE [Suspect]
     Dosage: UNK UKN, UNK
  7. SERTRALINE HYDROCHLORIDE [Concomitant]
     Indication: DEPRESSION
     Dosage: 1 DF, QD
  8. MELLARIL [Concomitant]
     Indication: NERVOUSNESS
     Dosage: 1 DF, QD

REACTIONS (4)
  - BLOOD GLUCOSE INCREASED [None]
  - BLOOD CHOLESTEROL INCREASED [None]
  - DEPRESSION [None]
  - BLOOD TRIGLYCERIDES INCREASED [None]
